FAERS Safety Report 8837160 (Version 2)
Quarter: 2013Q4

REPORT INFORMATION
  Report Type: Report from Study
  Country: CA (occurrence: CA)
  Receive Date: 20121011
  Receipt Date: 20131122
  Transmission Date: 20140711
  Serious: Yes (Hospitalization)
  Sender: FDA-Public Use
  Company Number: CA-ROCHE-1139348

PATIENT
  Age: 47 Year
  Sex: Male
  Weight: 60.5 kg

DRUGS (5)
  1. RITUXIMAB [Suspect]
     Indication: PEMPHIGUS
     Route: 042
     Dates: start: 20120916
  2. VORICONAZOLE [Concomitant]
  3. DIPHENHYDRAMINE HCL [Concomitant]
     Indication: PREMEDICATION
     Route: 048
     Dates: start: 20120926, end: 20120926
  4. ACETAMINOPHEN [Concomitant]
     Indication: PREMEDICATION
     Route: 048
     Dates: start: 20120926, end: 20120926
  5. METHYLPREDNISOLONE [Concomitant]
     Indication: PREMEDICATION
     Route: 042
     Dates: start: 20120926, end: 20120926

REACTIONS (7)
  - Nervousness [Unknown]
  - Pruritus [Not Recovered/Not Resolved]
  - Scab [Not Recovered/Not Resolved]
  - Neoplasm progression [Unknown]
  - Dehydration [Unknown]
  - Wheezing [Not Recovered/Not Resolved]
  - Productive cough [Not Recovered/Not Resolved]
